FAERS Safety Report 20603802 (Version 1)
Quarter: 2022Q1

REPORT INFORMATION
  Report Type: Spontaneous
  Country: US (occurrence: US)
  Receive Date: 20220316
  Receipt Date: 20220316
  Transmission Date: 20220423
  Serious: Yes (Hospitalization)
  Sender: FDA-Public Use
  Company Number: US-009507513-2203USA004833

PATIENT
  Sex: Female
  Weight: 106.58 kg

DRUGS (14)
  1. WELIREG [Suspect]
     Active Substance: BELZUTIFAN
     Indication: Renal cancer
     Dosage: 120 MILLIGRAM, QD
     Route: 048
  2. CARVEDILOL [Concomitant]
     Active Substance: CARVEDILOL
  3. AMLODIPINE [Concomitant]
     Active Substance: AMLODIPINE BESYLATE
  4. LOSARTAN [Concomitant]
     Active Substance: LOSARTAN
  5. LEVOTHYROXINE [Concomitant]
     Active Substance: LEVOTHYROXINE
  6. NOVOLOG [Concomitant]
     Active Substance: INSULIN ASPART
  7. BASAGLAR [Concomitant]
     Active Substance: INSULIN GLARGINE
  8. TYLENOL [Concomitant]
     Active Substance: ACETAMINOPHEN
  9. VITAMIN C [Concomitant]
     Active Substance: ASCORBIC ACID
  10. VITAMIN B12 [Concomitant]
     Active Substance: CYANOCOBALAMIN
  11. VITAMIN D3 [Concomitant]
     Active Substance: CHOLECALCIFEROL
  12. CALCIUM ACETATE [Concomitant]
     Active Substance: CALCIUM ACETATE
  13. FISH OIL [Concomitant]
     Active Substance: FISH OIL
  14. PHYTOSTEROLS NOS [Concomitant]

REACTIONS (2)
  - Oxygen saturation decreased [Unknown]
  - Migraine [Unknown]
